FAERS Safety Report 20151882 (Version 1)
Quarter: 2021Q4

REPORT INFORMATION
  Report Type: Spontaneous
  Country: US (occurrence: None)
  Receive Date: 20211204
  Receipt Date: 20211204
  Transmission Date: 20220303
  Serious: Yes (Other)
  Sender: FDA-Public Use
  Company Number: None

PATIENT
  Age: 42 Year
  Sex: Male
  Weight: 92.25 kg

DRUGS (1)
  1. OLD SPICE SWEAT DEFENSE ULTIMATE CAPTAIN DRY [Suspect]
     Active Substance: ALUMINUM CHLOROHYDRATE
     Dates: start: 20210701, end: 20211001

REACTIONS (2)
  - Rash [None]
  - Furuncle [None]

NARRATIVE: CASE EVENT DATE: 20211013
